FAERS Safety Report 8811230 (Version 2)
Quarter: 2012Q4

REPORT INFORMATION
  Report Type: 
  Country: JP (occurrence: JP)
  Receive Date: 20120927
  Receipt Date: 20121009
  Transmission Date: 20130627
  Serious: Yes (Hospitalization)
  Sender: FDA-Public Use
  Company Number: JP-SANOFI-AVENTIS-2012SA069937

PATIENT
  Age: 72 Year
  Sex: Male

DRUGS (3)
  1. TAXOTERE [Suspect]
     Indication: OROPHARYNGEAL CANCER
     Route: 042
     Dates: start: 201202
  2. CISPLATIN [Suspect]
     Indication: OROPHARYNGEAL CANCER
     Route: 065
     Dates: start: 201202
  3. 5-FU [Concomitant]
     Dosage: for 5 days
     Dates: start: 201202

REACTIONS (8)
  - Inappropriate antidiuretic hormone secretion [Recovered/Resolved]
  - Altered state of consciousness [Recovered/Resolved]
  - Nausea [Recovered/Resolved]
  - Vomiting [Recovered/Resolved]
  - Hyponatraemia [Recovered/Resolved]
  - Urine sodium increased [Recovered/Resolved]
  - Blood antidiuretic hormone increased [Recovered/Resolved]
  - Blood pressure decreased [Recovered/Resolved]
